FAERS Safety Report 5329315-X (Version None)
Quarter: 2007Q2

REPORT INFORMATION
  Report Type: 
  Country: None (occurrence: None)
  Receive Date: 20070518
  Receipt Date: 20070507
  Transmission Date: 20071010
  Serious: Yes (Other)
  Sender: FDA-Public Use
  Company Number: AR-PFIZER INC-2007038044

PATIENT
  Sex: Female

DRUGS (1)
  1. SUTENT [Suspect]

REACTIONS (1)
  - MYOCARDIAL ISCHAEMIA [None]
